FAERS Safety Report 5853515-3 (Version None)
Quarter: 2008Q3

REPORT INFORMATION
  Report Type: 
  Country: None (occurrence: None)
  Receive Date: 20080822
  Receipt Date: 20080812
  Transmission Date: 20090109
  Serious: Yes (Other)
  Sender: FDA-Public Use
  Company Number: TR-RANBAXY-2008RR-17323

PATIENT

DRUGS (1)
  1. RISPERIDONA RANBAXY  3MG COMPRIMIDOS EFG [Suspect]
     Indication: ABNORMAL BEHAVIOUR
     Dosage: 0.25 MG, BID

REACTIONS (1)
  - GASTROINTESTINAL HAEMORRHAGE [None]
